FAERS Safety Report 7910215-3 (Version None)
Quarter: 2011Q4

REPORT INFORMATION
  Report Type: 
  Country: None (occurrence: None)
  Receive Date: 20111111
  Receipt Date: 20111108
  Transmission Date: 20120403
  Serious: Yes (Other)
  Sender: FDA-Public Use
  Company Number: US-ROCHE-776808

PATIENT
  Sex: Male
  Weight: 70.3 kg

DRUGS (1)
  1. ACCUTANE [Suspect]
     Indication: ACNE
     Dosage: BETWEEN 1995 AND 1996

REACTIONS (5)
  - INFLAMMATORY BOWEL DISEASE [None]
  - CROHN'S DISEASE [None]
  - COLITIS ULCERATIVE [None]
  - ANAL FISSURE [None]
  - SMALL INTESTINAL OBSTRUCTION [None]
